FAERS Safety Report 7621318-5 (Version None)
Quarter: 2011Q3

REPORT INFORMATION
  Report Type: 
  Country: None (occurrence: None)
  Receive Date: 20110719
  Receipt Date: 20110712
  Transmission Date: 20111222
  Serious: Yes (Life-Threatening, Hospitalization, Disabling)
  Sender: FDA-Public Use
  Company Number: US-ELI_LILLY_AND_COMPANY-US201001005458

PATIENT
  Sex: Male

DRUGS (2)
  1. HUMATROPE [Suspect]
     Indication: BLOOD GROWTH HORMONE
     Dosage: 0.3 MG, DAILY (1/D)
     Dates: start: 20050101
  2. VITAMIN D [Concomitant]
     Dosage: 50,000 ONCE A MONTH

REACTIONS (8)
  - BRAIN NEOPLASM [None]
  - DEVICE MISUSE [None]
  - MECHANICAL VENTILATION [None]
  - BRAIN OEDEMA [None]
  - FALL [None]
  - COMA [None]
  - SURGERY [None]
  - COGNITIVE DISORDER [None]
